FAERS Safety Report 5973267-6 (Version None)
Quarter: 2008Q4

REPORT INFORMATION
  Report Type: 
  Country: None (occurrence: None)
  Receive Date: 20081126
  Receipt Date: 20081111
  Transmission Date: 20090506
  Serious: Yes (Death, Hospitalization, Other)
  Sender: FDA-Public Use
  Company Number: 54389

PATIENT
  Age: 64 Year
  Sex: Male

DRUGS (1)
  1. PROPOFOL [Suspect]
     Indication: CONVULSION
     Dosage: 1 MG/JG BOLUS, INFUSION OF 120-140 ?G/KG/MI

REACTIONS (8)
  - ANOXIC ENCEPHALOPATHY [None]
  - BLOOD CREATINE PHOSPHOKINASE INCREASED [None]
  - BLOOD TRIGLYCERIDES INCREASED [None]
  - HYPOTENSION [None]
  - LACTIC ACIDOSIS [None]
  - MYOGLOBIN BLOOD INCREASED [None]
  - PROPOFOL INFUSION SYNDROME [None]
  - RENAL FAILURE ACUTE [None]
